FAERS Safety Report 12806834 (Version 2)
Quarter: 2016Q4

REPORT INFORMATION
  Report Type: Spontaneous
  Country: US (occurrence: US)
  Receive Date: 20161004
  Receipt Date: 20161116
  Transmission Date: 20170207
  Serious: No
  Sender: FDA-Public Use
  Company Number: US-JNJFOC-20160820600

PATIENT
  Age: 37 Year
  Sex: Male
  Weight: 88.45 kg

DRUGS (2)
  1. MENS ROGAINE EXTRA STRENGTH [Suspect]
     Active Substance: MINOXIDIL
     Route: 061
  2. MENS ROGAINE EXTRA STRENGTH [Suspect]
     Active Substance: MINOXIDIL
     Indication: ALOPECIA
     Dosage: 1/2 CAPFUL
     Route: 061
     Dates: start: 20160414

REACTIONS (5)
  - Alopecia [Unknown]
  - Product use issue [Unknown]
  - Scab [Unknown]
  - Intentional product misuse [Unknown]
  - Drug administered at inappropriate site [Unknown]
